FAERS Safety Report 8919764 (Version 4)
Quarter: 2015Q4

REPORT INFORMATION
  Report Type: Spontaneous
  Country: US (occurrence: US)
  Receive Date: 20121121
  Receipt Date: 20151217
  Transmission Date: 20160305
  Serious: Yes (Other)
  Sender: FDA-Public Use
  Company Number: US-BAYER-2012-120799

PATIENT
  Age: 20 Year
  Sex: Female
  Weight: 80.73 kg

DRUGS (3)
  1. IBUPROFEN. [Concomitant]
     Active Substance: IBUPROFEN
  2. PROPOXYPHENE NAPSYLATE W/ACETAMINOPHENE [Concomitant]
     Active Substance: ACETAMINOPHEN\PROPOXYPHENE NAPSYLATE
  3. YAZ [Suspect]
     Active Substance: DROSPIRENONE\ETHINYL ESTRADIOL
     Indication: CONTRACEPTION
     Dosage: UNK
     Dates: start: 20081220, end: 200904

REACTIONS (13)
  - Eye disorder [None]
  - Visual acuity reduced [None]
  - Retinal ischaemia [None]
  - Retinal haemorrhage [None]
  - Retinal vein thrombosis [None]
  - Retinopathy [None]
  - Embolism arterial [None]
  - Anxiety [None]
  - Emotional distress [None]
  - General physical health deterioration [None]
  - Headache [None]
  - Injury [None]
  - Pain [None]

NARRATIVE: CASE EVENT DATE: 200904
